FAERS Safety Report 9428457 (Version 1)
Quarter: 2013Q3

REPORT INFORMATION
  Report Type: Report from Study
  Country: US (occurrence: US)
  Receive Date: 20130730
  Receipt Date: 20130730
  Transmission Date: 20140515
  Serious: No
  Sender: FDA-Public Use
  Company Number: US-ABBOTT-13P-163-1034036-00

PATIENT
  Age: 68 Year
  Sex: Female
  Weight: 54.93 kg

DRUGS (3)
  1. NIASPAN (COATED) [Suspect]
     Indication: CARDIOVASCULAR DISORDER
     Dosage: AT BEDTIME
     Dates: start: 201212, end: 20130107
  2. NIASPAN (COATED) [Suspect]
     Indication: BLOOD CHOLESTEROL INCREASED
  3. LIPITOR [Concomitant]
     Indication: PRODUCT USED FOR UNKNOWN INDICATION

REACTIONS (3)
  - Loss of consciousness [Recovered/Resolved]
  - Flushing [Recovered/Resolved]
  - Flushing [Recovered/Resolved]
